FAERS Safety Report 12438076 (Version 1)
Quarter: 2016Q2

REPORT INFORMATION
  Report Type: Spontaneous
  Country: CH (occurrence: CH)
  Receive Date: 20160606
  Receipt Date: 20160606
  Transmission Date: 20160815
  Serious: Yes (Other)
  Sender: FDA-Public Use
  Company Number: CH-GLAXOSMITHKLINE-CH2016077634

PATIENT
  Age: 15 Year
  Sex: Male
  Weight: 56 kg

DRUGS (3)
  1. RELVAR ELLIPTA [Suspect]
     Active Substance: FLUTICASONE FUROATE\VILANTEROL TRIFENATATE
     Indication: PNEUMONIA MYCOPLASMAL
     Dosage: 1 DF, QD
     Route: 055
     Dates: start: 20160119, end: 20160122
  2. SOLMUCOL [Concomitant]
     Active Substance: ACETYLCYSTEINE
     Indication: PNEUMONIA MYCOPLASMAL
     Dosage: UNK
     Route: 048
     Dates: start: 20160119, end: 201601
  3. TAVANIC [Suspect]
     Active Substance: LEVOFLOXACIN
     Indication: PNEUMONIA MYCOPLASMAL
     Dosage: 500 MG, BID
     Route: 048
     Dates: start: 20160119, end: 20160128

REACTIONS (5)
  - Off label use [Recovered/Resolved]
  - Arthralgia [Not Recovered/Not Resolved]
  - Impaired work ability [Not Recovered/Not Resolved]
  - Joint swelling [Recovering/Resolving]
  - Osteochondrosis [Not Recovered/Not Resolved]

NARRATIVE: CASE EVENT DATE: 20160119
